FAERS Safety Report 9258537 (Version 2)
Quarter: 2013Q2

REPORT INFORMATION
  Report Type: Report from Study
  Country: AU (occurrence: AU)
  Receive Date: 20130426
  Receipt Date: 20130617
  Transmission Date: 20140414
  Serious: Yes (Hospitalization)
  Sender: FDA-Public Use
  Company Number: AU-VERTEX PHARMACEUTICALS INC.-2013-001714

PATIENT
  Age: 13 Year
  Sex: Female
  Weight: 32.8 kg

DRUGS (7)
  1. VX-770 [Suspect]
     Indication: CYSTIC FIBROSIS
     Dosage: 150 MG, Q12H
     Route: 048
     Dates: start: 20100430, end: 20110322
  2. VX-770 [Suspect]
     Dosage: 150 MG, BID
     Route: 048
     Dates: start: 20110323
  3. CREON [Concomitant]
     Indication: PANCREATIC INSUFFICIENCY
     Dosage: 10000 U/KG P
     Dates: start: 20011228
  4. AUGMENTIN [Concomitant]
     Indication: PROPHYLAXIS
     Dosage: 437.5/62.6MG
     Dates: start: 20000707
  5. MULTIVITAMIN [Concomitant]
     Indication: MEDICAL DIET
  6. SALT PETRE [Concomitant]
     Indication: HYPONATRAEMIA
     Dosage: 600 MG, PRN
  7. PEDIASURE [Concomitant]
     Indication: MEDICAL DIET
     Dosage: UNK
     Dates: start: 20080102

REACTIONS (2)
  - Migraine [Recovered/Resolved]
  - Infective pulmonary exacerbation of cystic fibrosis [Recovered/Resolved]
